FAERS Safety Report 24459664 (Version 1)
Quarter: 2024Q4

REPORT INFORMATION
  Report Type: Report from Study
  Country: US (occurrence: US)
  Receive Date: 20241018
  Receipt Date: 20241018
  Transmission Date: 20250115
  Serious: No
  Sender: ROCHE
  Company Number: US-ROCHE-3552989

PATIENT
  Age: 3 Year
  Sex: Female
  Weight: 22.68 kg

DRUGS (3)
  1. RITUXAN [Suspect]
     Active Substance: RITUXIMAB
     Indication: Nephrotic syndrome
     Route: 042
     Dates: start: 202111, end: 202111
  2. RITUXAN [Suspect]
     Active Substance: RITUXIMAB
     Route: 042
     Dates: start: 202210, end: 202210
  3. RITUXAN [Suspect]
     Active Substance: RITUXIMAB
     Route: 042
     Dates: start: 202307, end: 202307

REACTIONS (5)
  - Off label use [Unknown]
  - Polycythaemia [Recovered/Resolved]
  - Oedema [Recovered/Resolved]
  - CD19 lymphocytes decreased [Unknown]
  - B-lymphocyte count decreased [Unknown]

NARRATIVE: CASE EVENT DATE: 20211101
